FAERS Safety Report 17679224 (Version 1)
Quarter: 2020Q2

REPORT INFORMATION
  Report Type: Spontaneous
  Country: PT (occurrence: PT)
  Receive Date: 20200417
  Receipt Date: 20200417
  Transmission Date: 20200714
  Serious: Yes (Hospitalization)
  Sender: FDA-Public Use
  Company Number: PT-SA-2020SA097222

PATIENT
  Age: 63 Year
  Sex: Male

DRUGS (5)
  1. RANITIDINE. [Suspect]
     Active Substance: RANITIDINE
     Dosage: 150 MG
  2. CLADRIBINE. [Suspect]
     Active Substance: CLADRIBINE
     Dosage: UNK
  3. DESLORATADINA GENFAR [Suspect]
     Active Substance: DESLORATADINE
     Dosage: 5 MG
  4. MONTELUKAST [Suspect]
     Active Substance: MONTELUKAST SODIUM
     Indication: SYSTEMIC MASTOCYTOSIS
     Dosage: 10 MG
     Route: 048
  5. KETOTIFEN FUMARATE. [Suspect]
     Active Substance: KETOTIFEN FUMARATE
     Dosage: 1 MG

REACTIONS (3)
  - Abdominal pain [Not Recovered/Not Resolved]
  - Product use in unapproved indication [Unknown]
  - Condition aggravated [Not Recovered/Not Resolved]
